FAERS Safety Report 8849732 (Version 1)
Quarter: 2012Q4

REPORT INFORMATION
  Report Type: 
  Country: DK (occurrence: GB)
  Receive Date: 20121019
  Receipt Date: 20121019
  Transmission Date: 20130627
  Serious: Yes (Other)
  Sender: FDA-Public Use
  Company Number: GB-FRI-1000039605

PATIENT
  Age: 57 Year
  Sex: Female
  Weight: 100 kg

DRUGS (4)
  1. ESCITALOPRAM [Suspect]
     Indication: DEPRESSION
     Route: 048
     Dates: start: 20120530, end: 20120809
  2. VENLALIC XL [Concomitant]
     Indication: DEPRESSION
     Dosage: 150 mg
     Route: 048
     Dates: start: 20120319, end: 20120530
  3. VENLALIC XL [Concomitant]
     Dosage: 75 mg
     Route: 048
     Dates: start: 20120530, end: 20120614
  4. ZAPAIN [Concomitant]
     Indication: PAIN
     Route: 048

REACTIONS (4)
  - Face oedema [Recovered/Resolved]
  - Oedema peripheral [Recovered/Resolved]
  - Swelling [Recovered/Resolved]
  - Weight increased [Unknown]
